FAERS Safety Report 6235193-7 (Version None)
Quarter: 2009Q2

REPORT INFORMATION
  Report Type: 
  Country: None (occurrence: None)
  Receive Date: 20090618
  Receipt Date: 20090610
  Transmission Date: 20091009
  Serious: Yes (Other)
  Sender: FDA-Public Use
  Company Number: US-GENENTECH-284856

PATIENT
  Age: 42 Year
  Sex: Male

DRUGS (13)
  1. RITUXIMAB [Suspect]
     Indication: DIFFUSE LARGE B-CELL LYMPHOMA
     Dosage: UNK
  2. RITUXIMAB [Suspect]
     Indication: DISEASE PROGRESSION
  3. RITUXIMAB [Suspect]
     Indication: DIFFUSE LARGE B-CELL LYMPHOMA RECURRENT
  4. CYCLOPHOSPHAMIDE [Concomitant]
     Indication: DIFFUSE LARGE B-CELL LYMPHOMA
  5. DOXORUBICIN HCL [Concomitant]
     Indication: DIFFUSE LARGE B-CELL LYMPHOMA
  6. VINCRISTINE [Concomitant]
     Indication: DIFFUSE LARGE B-CELL LYMPHOMA
  7. PREDNISONE [Concomitant]
     Indication: DIFFUSE LARGE B-CELL LYMPHOMA
  8. CARMUSTINE [Concomitant]
     Indication: DISEASE PROGRESSION
     Dosage: UNK
     Dates: start: 20070401
  9. ETOPOSIDE [Concomitant]
     Indication: DISEASE PROGRESSION
     Dosage: UNK
     Dates: start: 20070401
  10. CYCLOPHOSPHAMIDE [Concomitant]
     Indication: DISEASE PROGRESSION
     Dosage: UNK
     Dates: start: 20070401
  11. IFOSFAMIDE [Concomitant]
     Indication: DIFFUSE LARGE B-CELL LYMPHOMA RECURRENT
  12. CARBOPLATIN [Concomitant]
     Indication: DIFFUSE LARGE B-CELL LYMPHOMA RECURRENT
  13. ETOPOSIDE [Concomitant]
     Indication: DIFFUSE LARGE B-CELL LYMPHOMA RECURRENT

REACTIONS (5)
  - ASPIRATION [None]
  - ENCEPHALITIS [None]
  - ESCHERICHIA SEPSIS [None]
  - PNEUMONIA NECROTISING [None]
  - VIRAL INFECTION [None]
